FAERS Safety Report 4331795-3 (Version None)
Quarter: 2004Q2

REPORT INFORMATION
  Report Type: 
  Country: None (occurrence: None)
  Receive Date: 20040405
  Receipt Date: 20030825
  Transmission Date: 20050107
  Serious: No
  Sender: FDA-Public Use
  Company Number: US-GLAXOSMITHKLINE-A0423414A

PATIENT
  Age: 77 Year
  Sex: Female

DRUGS (3)
  1. FLOVENT [Suspect]
     Indication: ASTHMA
     Dosage: 220MCG TWICE PER DAY
     Route: 055
     Dates: start: 20030101, end: 20030825
  2. SINGULAIR [Concomitant]
  3. BLOOD PRESSURE MED [Concomitant]

REACTIONS (3)
  - COUGH [None]
  - EPISTAXIS [None]
  - HOARSENESS [None]
